FAERS Safety Report 9401398 (Version 1)
Quarter: 2013Q3

REPORT INFORMATION
  Report Type: Spontaneous
  Country: CN (occurrence: CN)
  Receive Date: 20130715
  Receipt Date: 20130715
  Transmission Date: 20140515
  Serious: Yes (Other)
  Sender: FDA-Public Use
  Company Number: CN-BAXTER-2013BAX026647

PATIENT
  Age: 3 Year
  Sex: Female
  Weight: 16 kg

DRUGS (3)
  1. 10% GLUCOSE INJECTION [Suspect]
     Indication: FLUID REPLACEMENT
     Route: 041
     Dates: start: 20120807, end: 20120812
  2. VITAMIN C [Suspect]
     Indication: FLUID REPLACEMENT
     Route: 041
     Dates: start: 20120807, end: 20120812
  3. 10% SODIUM CHLORIDE [Suspect]
     Indication: PRODUCT USED FOR UNKNOWN INDICATION
     Route: 065

REACTIONS (4)
  - Infusion related reaction [Recovered/Resolved]
  - Temperature intolerance [Recovered/Resolved]
  - Chills [Recovered/Resolved]
  - Crying [Recovered/Resolved]
